FAERS Safety Report 4707880-0 (Version None)
Quarter: 2005Q2

REPORT INFORMATION
  Report Type: 
  Country: None (occurrence: None)
  Receive Date: 20050629
  Receipt Date: 20050316
  Transmission Date: 20051028
  Serious: No
  Sender: FDA-Public Use
  Company Number: 05P-163-0294429-00

PATIENT
  Age: 49 Year
  Sex: Female
  Weight: 61.2356 kg

DRUGS (16)
  1. HUMIRA [Suspect]
     Indication: RHEUMATOID ARTHRITIS
     Dosage: 40 MG, 1 IN 2 WK, SUBCUTANEOUS
     Route: 058
     Dates: start: 20040101
  2. METHOTREXATE [Concomitant]
  3. CENTRUM [Concomitant]
  4. RABEPRAZOLE SODIUM [Concomitant]
  5. ZOLPIDEM TARTRATE [Concomitant]
  6. ASPIRIN [Concomitant]
  7. DEXTROPROPOXYPHENE HYDROCHLORIDE [Concomitant]
  8. DIGOXIN [Concomitant]
  9. METOCLOPRAMIDE [Concomitant]
  10. FOSINOPRIL SODIUM [Concomitant]
  11. NITRO-DUR [Concomitant]
  12. OXYCODONE [Concomitant]
  13. SPIRONOLACT [Concomitant]
  14. PRAVASTATIN SODIUM [Concomitant]
  15. ISOSORB [Concomitant]
  16. RISEDRONATE SODIUM [Concomitant]

REACTIONS (2)
  - HEADACHE [None]
  - THYROID FUNCTION TEST ABNORMAL [None]
